FAERS Safety Report 7722485-5 (Version None)
Quarter: 2011Q3

REPORT INFORMATION
  Report Type: 
  Country: None (occurrence: None)
  Receive Date: 20110831
  Receipt Date: 20110829
  Transmission Date: 20111222
  Serious: Yes (Death, Hospitalization)
  Sender: FDA-Public Use
  Company Number: JP-PFIZER INC-2011164872

PATIENT
  Age: 74 Year
  Sex: Male

DRUGS (9)
  1. METHYCOBAL [Concomitant]
     Dosage: 500 MICROG
     Route: 048
  2. OXYCONTIN [Concomitant]
     Dosage: UNK
     Route: 048
  3. VOLTAREN [Concomitant]
     Dosage: 25MG DAILY
     Route: 048
  4. LYRICA [Suspect]
     Dosage: 75 MG, 2X/DAY
     Route: 048
     Dates: start: 20110412, end: 20110425
  5. FERROUS CITRATE [Concomitant]
     Dosage: 50MG DAILY
     Route: 048
  6. LYRICA [Suspect]
     Dosage: 75 MG, 1X/DAY
     Route: 048
     Dates: start: 20110426, end: 20110525
  7. VOLTAREN [Concomitant]
     Dosage: 50MG DAILY
     Route: 054
  8. MUCOSTA [Concomitant]
     Dosage: 100MG DAILY
     Route: 048
  9. CINAL [Concomitant]
     Dosage: UNK
     Route: 048

REACTIONS (3)
  - NEOPLASM PROGRESSION [None]
  - OEDEMA PERIPHERAL [None]
  - ASTHENIA [None]
